FAERS Safety Report 5566661-9 (Version None)
Quarter: 2007Q4

REPORT INFORMATION
  Report Type: 
  Country: None (occurrence: None)
  Receive Date: 20071218
  Receipt Date: 20071218
  Transmission Date: 20080405
  Serious: No
  Sender: FDA-Public Use
  Company Number: None

PATIENT
  Age: 42 Year
  Sex: Female
  Weight: 54.4316 kg

DRUGS (9)
  1. LISINOPRIL [Suspect]
     Dosage: 20MG PO
     Route: 048
  2. CLONAZEPAM [Concomitant]
  3. PLAVIX [Concomitant]
  4. METOPROLOL [Concomitant]
  5. TRAZODONE HCL [Concomitant]
  6. FAMOTODINE [Concomitant]
  7. LIPITOR [Concomitant]
  8. CELEXA [Concomitant]
  9. RANITIDINE HCL [Concomitant]

REACTIONS (3)
  - BLOOD CREATININE INCREASED [None]
  - CONFUSIONAL STATE [None]
  - ORTHOSTATIC HYPOTENSION [None]
